FAERS Safety Report 23845302 (Version 1)
Quarter: 2024Q2

REPORT INFORMATION
  Report Type: Spontaneous
  Country: GB (occurrence: GB)
  Receive Date: 20240511
  Receipt Date: 20240511
  Transmission Date: 20240716
  Serious: Yes (Hospitalization, Disabling, Other)
  Sender: FDA-Public Use
  Company Number: GB-009507513-2404GBR008935

PATIENT
  Age: 70 Year
  Sex: Female
  Weight: 110 kg

DRUGS (12)
  1. MONTELUKAST [Suspect]
     Active Substance: MONTELUKAST SODIUM
     Indication: Product used for unknown indication
     Dosage: UNK
     Route: 048
     Dates: start: 20220307, end: 20220527
  2. ZOSTAVAX [Suspect]
     Active Substance: VARICELLA-ZOSTER VIRUS STRAIN OKA/MERCK LIVE ANTIGEN
     Indication: Prophylaxis
     Dosage: UNK
     Route: 065
     Dates: start: 20210804
  3. ATORVASTATIN [Concomitant]
     Active Substance: ATORVASTATIN
     Indication: Product used for unknown indication
     Dosage: 20 MILLIGRAM, ONCE A DAY
     Route: 048
  4. BUDESONIDE\FORMOTEROL [Concomitant]
     Active Substance: BUDESONIDE\FORMOTEROL
     Indication: Product used for unknown indication
     Dosage: 1 DOSAGE FORM, TWO TIMES A DAY
     Route: 065
  5. LANSOPRAZOLE [Concomitant]
     Active Substance: LANSOPRAZOLE
     Indication: Product used for unknown indication
     Dosage: 30 MILLIGRAM, ONCE A DAY (AT NIGHT)
     Route: 048
  6. LERCANIDIPINE [Concomitant]
     Active Substance: LERCANIDIPINE
     Indication: Product used for unknown indication
     Dosage: 10 MILLIGRAM, ONCE A DAY
     Route: 065
  7. LEVOTHYROXINE SODIUM [Concomitant]
     Active Substance: LEVOTHYROXINE SODIUM
     Indication: Product used for unknown indication
     Dosage: 100 MICROGRAM, ONCE A DAY (IN THE MORNING)
     Route: 065
  8. METFORMIN [Concomitant]
     Active Substance: METFORMIN HYDROCHLORIDE
     Indication: Product used for unknown indication
     Dosage: 1 GRAM, ONCE A DAY (IN THE EVENING)
     Route: 048
  9. INSULIN ASPART [Concomitant]
     Active Substance: INSULIN ASPART
     Indication: Product used for unknown indication
     Dosage: UNK
     Route: 065
  10. OXYTETRACYCLINE [Concomitant]
     Active Substance: OXYTETRACYCLINE
     Indication: Product used for unknown indication
     Dosage: 250 MILLIGRAM, ONCE A DAY
     Route: 065
  11. ALBUTEROL SULFATE [Concomitant]
     Active Substance: ALBUTEROL SULFATE
     Indication: Product used for unknown indication
     Dosage: 2 DOSAGE FORM, ONCE A DAY (PRN)
     Route: 065
  12. TRULICITY [Concomitant]
     Active Substance: DULAGLUTIDE
     Indication: Product used for unknown indication
     Dosage: 3 MILLIGRAM, EVERY WEEK
     Route: 065

REACTIONS (49)
  - Acute kidney injury [Unknown]
  - Osteoarthritis [Unknown]
  - Anaphylactic reaction [Unknown]
  - Type 2 diabetes mellitus [Unknown]
  - Diabetic neuropathy [Unknown]
  - Scar [Unknown]
  - Diarrhoea [Recovered/Resolved]
  - Nasal cavity mass [Unknown]
  - Dermal cyst [Unknown]
  - Adverse drug reaction [Unknown]
  - Escherichia urinary tract infection [Unknown]
  - Tension headache [Unknown]
  - Abdominal pain [Unknown]
  - Vomiting [Unknown]
  - Rash [Unknown]
  - Bursitis [Unknown]
  - Rotator cuff syndrome [Unknown]
  - Tenosynovitis [Unknown]
  - Feeling of body temperature change [Unknown]
  - Vulva cyst [Unknown]
  - Urinary tract infection [Unknown]
  - Dysuria [Unknown]
  - Pollakiuria [Unknown]
  - Muscle spasms [Unknown]
  - Muscle tightness [Unknown]
  - Paraesthesia [Unknown]
  - Tendon discomfort [Unknown]
  - Tonsillitis [Unknown]
  - Feeling abnormal [Unknown]
  - Neck mass [Unknown]
  - Pruritus [Unknown]
  - Red blood cell sedimentation rate increased [Unknown]
  - Allergy to vaccine [Unknown]
  - Vitamin D deficiency [Unknown]
  - Skin burning sensation [Unknown]
  - Immune system disorder [Unknown]
  - Illness [Unknown]
  - Contusion [Unknown]
  - Nausea [Unknown]
  - Immunoglobulins abnormal [Unknown]
  - Vaccination site mass [Unknown]
  - Haematocrit abnormal [Unknown]
  - Mean cell volume abnormal [Unknown]
  - Neutrophil count abnormal [Unknown]
  - Mean cell haemoglobin decreased [Unknown]
  - White blood cell count abnormal [Unknown]
  - Skin hyperpigmentation [Unknown]
  - Vertigo [Unknown]
  - Henoch-Schonlein purpura [Recovering/Resolving]

NARRATIVE: CASE EVENT DATE: 20210101
